FAERS Safety Report 14879780 (Version 2)
Quarter: 2018Q3

REPORT INFORMATION
  Report Type: Spontaneous
  Country: CZ (occurrence: CZ)
  Receive Date: 20180511
  Receipt Date: 20180723
  Transmission Date: 20181010
  Serious: Yes (Disabling, Other)
  Sender: FDA-Public Use
  Company Number: CZ-TEVA-2018-CZ-888689

PATIENT
  Age: 69 Year
  Sex: Male

DRUGS (4)
  1. FLUOROURACIL. [Suspect]
     Active Substance: FLUOROURACIL
     Indication: COLORECTAL ADENOCARCINOMA
     Dosage: PART OF FOLFOX6 REGIMEN
     Route: 042
     Dates: start: 20160113, end: 201606
  2. OXALIPLATIN. [Suspect]
     Active Substance: OXALIPLATIN
     Indication: COLORECTAL ADENOCARCINOMA
     Dosage: PART OF FOLFOX6 REGIMEN
     Route: 042
     Dates: start: 20160113, end: 201606
  3. CETUXIMAB. [Suspect]
     Active Substance: CETUXIMAB
     Indication: COLORECTAL ADENOCARCINOMA
     Route: 042
     Dates: start: 201601, end: 201606
  4. FOLINIC ACID [Suspect]
     Active Substance: LEUCOVORIN
     Indication: COLORECTAL ADENOCARCINOMA
     Dosage: PART OF FOLFOX6 REGIMEN
     Route: 042
     Dates: start: 20160113, end: 201606

REACTIONS (6)
  - Skin toxicity [Unknown]
  - Hypomagnesaemia [Unknown]
  - Paraesthesia [Unknown]
  - Dermatitis acneiform [Unknown]
  - Neutropenia [Unknown]
  - Femoral neck fracture [Recovered/Resolved with Sequelae]

NARRATIVE: CASE EVENT DATE: 2016
